FAERS Safety Report 17931846 (Version 7)
Quarter: 2022Q3

REPORT INFORMATION
  Report Type: Report from Study
  Country: US (occurrence: US)
  Receive Date: 20200624
  Receipt Date: 20220629
  Transmission Date: 20221027
  Serious: Yes (Hospitalization, Other)
  Sender: FDA-Public Use
  Company Number: US-NOVARTISTESTPH-NVSC2020US177301

PATIENT
  Sex: Male

DRUGS (1)
  1. COSENTYX [Suspect]
     Active Substance: SECUKINUMAB
     Indication: Product used for unknown indication
     Dosage: UNK
     Route: 065

REACTIONS (8)
  - Pneumonia [Unknown]
  - Atypical pneumonia [Unknown]
  - Hypersensitivity [Unknown]
  - Peripheral swelling [Unknown]
  - Psoriasis [Unknown]
  - Adverse drug reaction [Unknown]
  - Movement disorder [Unknown]
  - Sinusitis [Unknown]
